FAERS Safety Report 17593429 (Version 1)
Quarter: 2020Q1

REPORT INFORMATION
  Report Type: Spontaneous
  Country: US (occurrence: US)
  Receive Date: 20200327
  Receipt Date: 20200327
  Transmission Date: 20200409
  Serious: No
  Sender: FDA-Public Use
  Company Number: US-TOPROL ACQUISITION LLC-2019-TOP-001426

PATIENT
  Sex: Male
  Weight: 116.1 kg

DRUGS (6)
  1. SEROQUEL [Concomitant]
     Active Substance: QUETIAPINE FUMARATE
     Indication: BIPOLAR DISORDER
     Dosage: 400 MG, QD
     Route: 048
     Dates: start: 2015, end: 20191112
  2. ATORVASTATIN [Concomitant]
     Active Substance: ATORVASTATIN
     Indication: BLOOD CHOLESTEROL INCREASED
     Dosage: 80 MG, QD
     Route: 048
  3. BABY ASPIRIN [Concomitant]
     Active Substance: ASPIRIN
     Indication: ARRHYTHMIA
     Dosage: 81 MG, QD
     Route: 048
  4. METOPROLOL SUCCINATE. [Suspect]
     Active Substance: METOPROLOL SUCCINATE
     Indication: HEART RATE ABNORMAL
     Dosage: 75 MG, QD
     Route: 048
     Dates: start: 201812
  5. LISINOPRIL. [Concomitant]
     Active Substance: LISINOPRIL
     Indication: HYPERTENSION
     Dosage: 5 MG, QD
     Route: 048
     Dates: start: 201812
  6. SOTALOL. [Concomitant]
     Active Substance: SOTALOL
     Indication: ARRHYTHMIA
     Dosage: 80 MG, BID
     Route: 048

REACTIONS (2)
  - Off label use [Unknown]
  - Inappropriate schedule of product administration [Unknown]
